FAERS Safety Report 5050758-6 (Version None)
Quarter: 2006Q3

REPORT INFORMATION
  Report Type: 
  Country: None (occurrence: None)
  Receive Date: 20060713
  Receipt Date: 20060710
  Transmission Date: 20061208
  Serious: Yes (Other)
  Sender: FDA-Public Use
  Company Number: CA-BOEHRINGER INGELHEIM PHARMACEUTICALS, INC.-2006-DE-03529GD

PATIENT

DRUGS (1)
  1. CLONIDINE [Suspect]
     Indication: ENDOCRINE TEST
     Dosage: 0.15 TO 0.3 MG (0.15 MG/ME2)
     Route: 048

REACTIONS (3)
  - BLOOD PRESSURE DECREASED [None]
  - LOSS OF CONSCIOUSNESS [None]
  - VOMITING [None]
